FAERS Safety Report 8046420-8 (Version None)
Quarter: 2012Q1

REPORT INFORMATION
  Report Type: 
  Country: None (occurrence: None)
  Receive Date: 20120113
  Receipt Date: 20120105
  Transmission Date: 20120608
  Serious: Yes (Hospitalization)
  Sender: FDA-Public Use
  Company Number: CA-ASTRAZENECA-2012SE01149

PATIENT
  Age: 68 Year
  Sex: Female

DRUGS (5)
  1. METFORMIN HCL [Concomitant]
     Indication: DIABETES MELLITUS
     Route: 048
  2. GLYBURIDE [Concomitant]
     Indication: DIABETES MELLITUS
     Route: 048
  3. ASPIRIN [Concomitant]
     Route: 048
  4. RAMIPRIL [Concomitant]
     Indication: HYPERTENSION
     Route: 048
  5. CRESTOR [Suspect]
     Route: 048

REACTIONS (5)
  - MEMORY IMPAIRMENT [None]
  - MUSCULAR WEAKNESS [None]
  - TREMOR [None]
  - TRANSIENT ISCHAEMIC ATTACK [None]
  - VOMITING [None]
